FAERS Safety Report 14425173 (Version 2)
Quarter: 2024Q3

REPORT INFORMATION
  Report Type: Spontaneous
  Country: US (occurrence: US)
  Receive Date: 20180123
  Receipt Date: 20240801
  Transmission Date: 20241017
  Serious: No
  Sender: PFIZER
  Company Number: US-PFIZER INC-2018024106

PATIENT
  Age: 75 Year
  Sex: Female
  Weight: 92.99 kg

DRUGS (5)
  1. PREMARIN [Suspect]
     Active Substance: ESTROGENS, CONJUGATED
     Dosage: 0.625 MG, DAILY
     Dates: start: 1978
  2. PREMARIN [Suspect]
     Active Substance: ESTROGENS, CONJUGATED
     Dosage: .625 MG, 2X/DAY (ONE IN THE MORNING AND ONE IN THE EVENING)
  3. PREMARIN [Suspect]
     Active Substance: ESTROGENS, CONJUGATED
     Dosage: 0.625 MG, WEEKLY
  4. PREMARIN [Suspect]
     Active Substance: ESTROGENS, CONJUGATED
     Dosage: 0.625 MG, 2X/DAY (TAKE ONE HALF OF A TABLET)
     Dates: start: 201712, end: 202407
  5. SYNTHROID [Concomitant]
     Active Substance: LEVOTHYROXINE SODIUM
     Indication: Blood pressure abnormal
     Dosage: 100 UG, 1X/DAY, (TAKES 2 EXTRA EVERY WEEK)

REACTIONS (2)
  - Abdominal pain upper [Not Recovered/Not Resolved]
  - Therapeutic response unexpected [Unknown]
